FAERS Safety Report 9124966 (Version 1)
Quarter: 2013Q1

REPORT INFORMATION
  Report Type: Spontaneous
  Country: US (occurrence: US)
  Receive Date: 20130117
  Receipt Date: 20130117
  Transmission Date: 20140127
  Serious: Yes (Other)
  Sender: FDA-Public Use
  Company Number: US-009507513-1301USA004344

PATIENT
  Sex: Female

DRUGS (6)
  1. SIMVASTATIN TABLETS, USP [Suspect]
  2. ZADITOR [Concomitant]
     Indication: ASTHMA
  3. DIOVAN [Concomitant]
  4. METOPROLOL [Concomitant]
  5. LEVOXYL [Concomitant]
  6. DARVOCET-N [Concomitant]

REACTIONS (6)
  - Bone pain [Unknown]
  - Blepharitis [Unknown]
  - Back pain [Unknown]
  - Musculoskeletal chest pain [Unknown]
  - Paraesthesia [Unknown]
  - Rash papular [Unknown]
